FAERS Safety Report 9760581 (Version 1)
Quarter: 2013Q4

REPORT INFORMATION
  Report Type: Spontaneous
  Country: US (occurrence: US)
  Receive Date: 20131216
  Receipt Date: 20131216
  Transmission Date: 20140711
  Serious: No
  Sender: FDA-Public Use
  Company Number: US-BIOGENIDEC-2013BI093040

PATIENT
  Sex: Male
  Weight: 95 kg

DRUGS (6)
  1. TECFIDERA [Suspect]
     Indication: PRODUCT USED FOR UNKNOWN INDICATION
     Route: 048
  2. TECFIDERA [Suspect]
     Indication: PRODUCT USED FOR UNKNOWN INDICATION
     Route: 048
  3. TRIAM/HCTZ [Concomitant]
  4. ATENOLOL [Concomitant]
  5. TRAMADOL [Concomitant]
  6. LISINOPRIL [Concomitant]

REACTIONS (1)
  - Flushing [Unknown]
